FAERS Safety Report 10724008 (Version 1)
Quarter: 2015Q1

REPORT INFORMATION
  Report Type: Spontaneous
  Country: US (occurrence: None)
  Receive Date: 20150116
  Receipt Date: 20150116
  Transmission Date: 20150721
  Serious: Yes (Hospitalization)
  Sender: FDA-Public Use
  Company Number: None

PATIENT
  Age: 74 Year
  Sex: Male
  Weight: 87.09 kg

DRUGS (7)
  1. FINESTRIDE [Concomitant]
  2. GLYBURIDE. [Concomitant]
     Active Substance: GLYBURIDE
  3. TERRAZOSIN [Concomitant]
  4. SOTOLOL [Concomitant]
     Active Substance: SOTALOL
  5. ASPIRIN. [Concomitant]
     Active Substance: ASPIRIN
  6. PRADAXA [Suspect]
     Active Substance: DABIGATRAN ETEXILATE MESYLATE
     Indication: ATRIAL FIBRILLATION
     Route: 048
     Dates: start: 20140905
  7. METFORMIN [Concomitant]
     Active Substance: METFORMIN HYDROCHLORIDE

REACTIONS (2)
  - Formication [None]
  - Rectal haemorrhage [None]

NARRATIVE: CASE EVENT DATE: 20140910
